FAERS Safety Report 9853699 (Version 1)
Quarter: 2014Q1

REPORT INFORMATION
  Report Type: Spontaneous
  Country: US (occurrence: US)
  Receive Date: 20140129
  Receipt Date: 20140129
  Transmission Date: 20141002
  Serious: No
  Sender: FDA-Public Use
  Company Number: US-GLAXOSMITHKLINE-A1008001A

PATIENT
  Age: 40 Year
  Sex: Female

DRUGS (1)
  1. WELLBUTRIN [Suspect]
     Indication: DEPRESSION
     Route: 048

REACTIONS (3)
  - Impaired driving ability [Not Recovered/Not Resolved]
  - Gait disturbance [Not Recovered/Not Resolved]
  - Balance disorder [Not Recovered/Not Resolved]
